FAERS Safety Report 8984498 (Version 1)
Quarter: 2012Q4

REPORT INFORMATION
  Report Type: Spontaneous
  Country: JP (occurrence: None)
  Receive Date: 20121214
  Receipt Date: 20121214
  Transmission Date: 20130627
  Serious: Yes (Other)
  Sender: FDA-Public Use
  Company Number: TCI2012A07035

PATIENT

DRUGS (2)
  1. TAKEPRON [Suspect]
     Route: 048
  2. ACETYLSALICYLIC ACID [Suspect]

REACTIONS (1)
  - Gastrointestinal perforation [None]
